FAERS Safety Report 8057929-5 (Version None)
Quarter: 2011Q4

REPORT INFORMATION
  Report Type: 
  Country: None (occurrence: None)
  Receive Date: 20111220
  Receipt Date: 20110325
  Transmission Date: 20120403
  Serious: Yes (Other)
  Sender: FDA-Public Use
  Company Number: 2008001043

PATIENT
  Sex: Male

DRUGS (7)
  1. KADIAN (100 MILLIGRAM) [Concomitant]
  2. OXYFAST (LIQUID) [Concomitant]
  3. OTFC (ORAL TRANSMUCOSAL FENTANYL CITRATE) (GENERIC ACTIQ) (FENTANYL CI [Suspect]
     Indication: BREAKTHROUGH PAIN
     Dosage: 1200 MCG (400 MCG, 4/DAY PRN), BU, (1600 MCG ), BU, (1200 MCG ),BU
     Route: 002
     Dates: start: 20080501
  4. OTFC (ORAL TRANSMUCOSAL FENTANYL CITRATE) (GENERIC ACTIQ) (FENTANYL CI [Suspect]
     Indication: BREAKTHROUGH PAIN
     Dosage: 1200 MCG (400 MCG, 4/DAY PRN), BU, (1600 MCG ), BU, (1200 MCG ),BU
     Route: 002
     Dates: start: 20040301
  5. OTFC (ORAL TRANSMUCOSAL FENTANYL CITRATE) (GENERIC ACTIQ) (FENTANYL CI [Suspect]
     Indication: BREAKTHROUGH PAIN
     Dosage: 1200 MCG (400 MCG, 4/DAY PRN), BU, (1600 MCG ), BU, (1200 MCG ),BU
     Route: 002
     Dates: start: 20070101
  6. HYDROMORPHONE (TABLET) [Concomitant]
  7. MORPHINE SULFATE [Concomitant]

REACTIONS (1)
  - DENTAL CARIES [None]
